FAERS Safety Report 11029979 (Version 3)
Quarter: 2015Q3

REPORT INFORMATION
  Report Type: Spontaneous
  Country: US (occurrence: US)
  Receive Date: 20150415
  Receipt Date: 20150819
  Transmission Date: 20151125
  Serious: No
  Sender: FDA-Public Use
  Company Number: US-BIOGENIDEC-2015BI041165

PATIENT
  Age: 56 Year
  Sex: Female

DRUGS (7)
  1. CALCIUM CARBONATE. [Concomitant]
     Active Substance: CALCIUM CARBONATE
  2. TECFIDERA [Suspect]
     Active Substance: DIMETHYL FUMARATE
     Indication: PRODUCT USED FOR UNKNOWN INDICATION
     Route: 048
  3. FISH OIL [Concomitant]
     Active Substance: FISH OIL
     Indication: PRODUCT USED FOR UNKNOWN INDICATION
  4. LOVASTATIN. [Concomitant]
     Active Substance: LOVASTATIN
  5. CRANBERRY CONCENTRATE [Concomitant]
     Active Substance: CRANBERRY CONCENTRATE
     Indication: PRODUCT USED FOR UNKNOWN INDICATION
  6. AMPYRA [Concomitant]
     Active Substance: DALFAMPRIDINE
     Indication: MULTIPLE SCLEROSIS
     Route: 048
     Dates: start: 201407
  7. VITAMIN D [Concomitant]
     Active Substance: CHOLECALCIFEROL

REACTIONS (3)
  - Urinary tract infection [Unknown]
  - Flushing [Not Recovered/Not Resolved]
  - Eructation [Not Recovered/Not Resolved]

NARRATIVE: CASE EVENT DATE: 201501
